FAERS Safety Report 6902612-X (Version None)
Quarter: 2010Q3

REPORT INFORMATION
  Report Type: 
  Country: None (occurrence: None)
  Receive Date: 20100803
  Receipt Date: 20080630
  Transmission Date: 20110219
  Serious: No
  Sender: FDA-Public Use
  Company Number: US-PFIZER INC-2008054971

PATIENT
  Sex: Female
  Weight: 72.6 kg

DRUGS (10)
  1. LYRICA [Suspect]
     Indication: FIBROMYALGIA
     Route: 048
     Dates: start: 20080531
  2. PREMARIN [Concomitant]
  3. METHADONE HCL [Concomitant]
  4. CELEBREX [Concomitant]
  5. CLONAZEPAM [Concomitant]
  6. TYLENOL [Concomitant]
  7. VITAMIN D [Concomitant]
  8. MULTI-VITAMINS [Concomitant]
  9. PEPCID AC [Concomitant]
  10. LIDODERM [Concomitant]

REACTIONS (9)
  - BREAST PAIN [None]
  - EUPHORIC MOOD [None]
  - FEELING ABNORMAL [None]
  - HYPERSENSITIVITY [None]
  - INSOMNIA [None]
  - NIPPLE DISORDER [None]
  - NIPPLE PAIN [None]
  - SOMNOLENCE [None]
  - SPEECH DISORDER [None]
